FAERS Safety Report 25227233 (Version 1)
Quarter: 2025Q2

REPORT INFORMATION
  Report Type: Spontaneous
  Country: CH (occurrence: CH)
  Receive Date: 20250422
  Receipt Date: 20250422
  Transmission Date: 20250717
  Serious: Yes (Other)
  Sender: PFIZER
  Company Number: CH-PFIZER INC-202500064708

PATIENT
  Age: 46 Year
  Sex: Male
  Weight: 72 kg

DRUGS (1)
  1. METHYLPREDNISOLONE [Suspect]
     Active Substance: METHYLPREDNISOLONE
     Indication: Back pain
     Route: 030
     Dates: start: 20250324

REACTIONS (2)
  - Generalised oedema [Recovered/Resolved]
  - Off label use [Unknown]
